FAERS Safety Report 7428918-6 (Version None)
Quarter: 2011Q2

REPORT INFORMATION
  Report Type: 
  Country: None (occurrence: None)
  Receive Date: 20110415
  Receipt Date: 20110415
  Transmission Date: 20111010
  Serious: Yes (Hospitalization)
  Sender: FDA-Public Use
  Company Number: None

PATIENT
  Age: 71 Year
  Sex: Female
  Weight: 50.8029 kg

DRUGS (9)
  1. SIMVASTATIN [Suspect]
  2. FUROSEMIDE [Concomitant]
  3. NITRO SL [Concomitant]
  4. ASPIRIN [Concomitant]
  5. DIAZEPAM [Concomitant]
  6. EFFIENT [Concomitant]
  7. LISINOPRIL [Concomitant]
  8. CARVEDILOL [Concomitant]
  9. POTASSIUM CHLORIDE [Concomitant]

REACTIONS (3)
  - MUSCULAR WEAKNESS [None]
  - ASTHENIA [None]
  - PAIN [None]
